FAERS Safety Report 16787084 (Version 1)
Quarter: 2019Q3

REPORT INFORMATION
  Report Type: Spontaneous
  Country: US (occurrence: US)
  Receive Date: 20190909
  Receipt Date: 20190909
  Transmission Date: 20191005
  Serious: No
  Sender: FDA-Public Use
  Company Number: US-SA-2019SA244756

PATIENT

DRUGS (4)
  1. ZANTAC [Suspect]
     Active Substance: RANITIDINE HYDROCHLORIDE
     Dosage: DOSES WERE DOUBLED AFTER A FEW YEARS AT 150 + 10.
     Route: 065
  2. MIDOL [ACETYLSALICYLIC ACID] [Concomitant]
     Dosage: 2 DF, QD
     Route: 065
  3. LORATADINE. [Concomitant]
     Active Substance: LORATADINE
     Dosage: 2 DF, QD
     Route: 065
  4. ZANTAC [Suspect]
     Active Substance: RANITIDINE HYDROCHLORIDE
     Dosage: 2 DF, QD
     Route: 065

REACTIONS (1)
  - Off label use [Unknown]
